FAERS Safety Report 23427511 (Version 4)
Quarter: 2024Q4

REPORT INFORMATION
  Report Type: Spontaneous
  Country: CA (occurrence: CA)
  Receive Date: 20240122
  Receipt Date: 20241223
  Transmission Date: 20250114
  Serious: Yes (Life-Threatening, Hospitalization, Other)
  Sender: ALEXION PHARMACEUTICALS
  Company Number: 2024A015819

PATIENT
  Age: 53 Year

DRUGS (13)
  1. QUETIAPINE FUMARATE [Suspect]
     Active Substance: QUETIAPINE FUMARATE
     Indication: Bipolar I disorder
     Dosage: 24.0 DOSAGE FORMS
  2. QUETIAPINE [Suspect]
     Active Substance: QUETIAPINE
     Indication: Bipolar I disorder
     Dosage: 24.0 DOSAGE FORMS
  3. ALPRAZOLAM [Suspect]
     Active Substance: ALPRAZOLAM
     Indication: Bipolar I disorder
     Dosage: 70.0 DOSAGE FORMS
  4. ALPRAZOLAM [Suspect]
     Active Substance: ALPRAZOLAM
  5. CLONAZEPAM [Suspect]
     Active Substance: CLONAZEPAM
     Indication: Bipolar I disorder
     Dosage: 48.0 DOSAGE FORMS
  6. CLONAZEPAM [Suspect]
     Active Substance: CLONAZEPAM
  7. DEXTROMETHORPHAN [Suspect]
     Active Substance: DEXTROMETHORPHAN
  8. DEXTROMETHORPHAN [Suspect]
     Active Substance: DEXTROMETHORPHAN
  9. LORAZEPAM [Suspect]
     Active Substance: LORAZEPAM
     Indication: Bipolar I disorder
     Dosage: 90.0 DOSAGE FORMS
  10. LORAZEPAM [Suspect]
     Active Substance: LORAZEPAM
  11. ZOPICLONE [Suspect]
     Active Substance: ZOPICLONE
     Indication: Bipolar I disorder
     Dosage: 10.0 DOSAGE FORMS
  12. ZOPICLONE [Suspect]
     Active Substance: ZOPICLONE
  13. ACETAMINOPHEN [Suspect]
     Active Substance: ACETAMINOPHEN
     Dosage: UNK
     Route: 065

REACTIONS (15)
  - Anion gap increased [Recovered/Resolved]
  - Anticholinergic syndrome [Unknown]
  - Blood pressure decreased [Recovered/Resolved]
  - Coma scale abnormal [Unknown]
  - Depressed level of consciousness [Unknown]
  - Intentional overdose [Recovered/Resolved]
  - Lactic acidosis [Recovered/Resolved]
  - Loss of consciousness [Recovered/Resolved]
  - Off label use [Unknown]
  - Osmolar gap increased [Recovered/Resolved]
  - Overdose [Unknown]
  - Respiratory rate decreased [Recovered/Resolved]
  - Sinus tachycardia [Recovered/Resolved]
  - Suicide attempt [Recovered/Resolved]
  - Toxicity to various agents [Recovered/Resolved]
